FAERS Safety Report 14583618 (Version 5)
Quarter: 2018Q2

REPORT INFORMATION
  Report Type: Spontaneous
  Country: US (occurrence: US)
  Receive Date: 20180228
  Receipt Date: 20180530
  Transmission Date: 20180711
  Serious: Yes (Other)
  Sender: FDA-Public Use
  Company Number: US-PFIZER INC-2018080199

PATIENT
  Age: 38 Year
  Sex: Female
  Weight: 49 kg

DRUGS (4)
  1. MEDROXYPROGESTERONE ACETATE. [Suspect]
     Active Substance: MEDROXYPROGESTERONE ACETATE
     Indication: DYSMENORRHOEA
     Dosage: 150 MG, EVERY 3 MONTHS
     Route: 030
  2. MEDROXYPROGESTERONE ACETATE. [Suspect]
     Active Substance: MEDROXYPROGESTERONE ACETATE
     Dosage: 150 MG, EVERY 3 MONTHS
  3. PERCOCET [Concomitant]
     Active Substance: ACETAMINOPHEN\OXYCODONE HYDROCHLORIDE
     Indication: ENDOMETRIOSIS
     Dosage: 10 MG/325, 4X/DAY (10 MG/325)
  4. MEDROXYPROGESTERONE ACETATE. [Suspect]
     Active Substance: MEDROXYPROGESTERONE ACETATE
     Indication: ENDOMETRIOSIS
     Dosage: 115 MG, EVERY 60 TO 75 DAYS
     Route: 030

REACTIONS (8)
  - Drug ineffective for unapproved indication [Not Recovered/Not Resolved]
  - Hypoaesthesia [Recovered/Resolved]
  - Vomiting [Recovered/Resolved]
  - Pain [Not Recovered/Not Resolved]
  - Dizziness [Recovered/Resolved]
  - Nausea [Not Recovered/Not Resolved]
  - Hypoaesthesia oral [Recovered/Resolved]
  - Seizure [Recovered/Resolved]

NARRATIVE: CASE EVENT DATE: 20180108
